FAERS Safety Report 6358099-1 (Version None)
Quarter: 2009Q3

REPORT INFORMATION
  Report Type: 
  Country: None (occurrence: None)
  Receive Date: 20090916
  Receipt Date: 20090904
  Transmission Date: 20100115
  Serious: Yes (Hospitalization, Other)
  Sender: FDA-Public Use
  Company Number: DE-CELGENEUS-062-20785-09050205

PATIENT
  Sex: Male
  Weight: 96 kg

DRUGS (7)
  1. THALIDOMIDE [Suspect]
     Indication: MULTIPLE MYELOMA
     Route: 048
     Dates: start: 20071107, end: 20080530
  2. THALIDOMIDE [Suspect]
     Route: 048
     Dates: start: 20080722, end: 20090213
  3. DEXAMETHASONE [Suspect]
     Indication: MULTIPLE MYELOMA
     Route: 048
     Dates: start: 20071107, end: 20080530
  4. DEXAMETHASONE [Suspect]
     Route: 048
     Dates: start: 20080722, end: 20090214
  5. ATENOLOL [Concomitant]
     Indication: HYPERTONIA
     Route: 048
  6. COTRIMAXAZOL [Concomitant]
     Indication: INFECTION PROPHYLAXIS
     Route: 048
  7. VITAMIN B-12 [Concomitant]
     Indication: VITAMIN B12 DEFICIENCY
     Route: 048

REACTIONS (3)
  - HAEMORRHAGE [None]
  - MENINGIOMA [None]
  - POLYNEUROPATHY [None]
